FAERS Safety Report 5227093-6 (Version None)
Quarter: 2007Q1

REPORT INFORMATION
  Report Type: 
  Country: None (occurrence: None)
  Receive Date: 20070201
  Receipt Date: 20070201
  Transmission Date: 20070707
  Serious: Yes (Hospitalization)
  Sender: FDA-Public Use
  Company Number: None

PATIENT
  Age: 73 Year
  Sex: Female

DRUGS (1)
  1. OXYCODONE;;;OPIOID ANALAGESICS; ;; [Suspect]
     Indication: ARTHRALGIA
     Dosage: 10MG Q4H PO PRN
     Route: 048
     Dates: start: 20061102, end: 20061205

REACTIONS (2)
  - HYPONATRAEMIA [None]
  - VOMITING [None]
